FAERS Safety Report 9285102 (Version 3)
Quarter: 2013Q2

REPORT INFORMATION
  Report Type: Report from Study
  Country: US (occurrence: US)
  Receive Date: 20130513
  Receipt Date: 20130611
  Transmission Date: 20140414
  Serious: Yes (Death, Life-Threatening, Hospitalization, Other)
  Sender: FDA-Public Use
  Company Number: US-ROCHE-1179258

PATIENT
  Age: 47 Year
  Sex: Male
  Weight: 63 kg

DRUGS (5)
  1. RITUXIMAB [Suspect]
     Indication: GRANULOMATOSIS WITH POLYANGIITIS
     Dosage: DOSE OF LAST DRUG TAKEN: 375 MG/M2, DATE OF MOST RECENT DOSE OF PRIOR TO SAE: 24 AUG 2012
     Route: 042
     Dates: start: 20120817
  2. RITUXIMAB [Suspect]
     Indication: MICROSCOPIC POLYANGIITIS
  3. METHYLPHENIDATE [Concomitant]
     Indication: PRODUCT USED FOR UNKNOWN INDICATION
     Route: 048
     Dates: start: 1985
  4. METHADONE [Concomitant]
     Indication: PRODUCT USED FOR UNKNOWN INDICATION
     Route: 048
     Dates: start: 201002
  5. DAPTOMYCIN [Concomitant]

REACTIONS (11)
  - Septic shock [Fatal]
  - Staphylococcal bacteraemia [Not Recovered/Not Resolved]
  - Deep vein thrombosis [Not Recovered/Not Resolved]
  - Pulmonary oedema [Recovered/Resolved]
  - Bacteraemia [Recovered/Resolved]
  - Bacteraemia [Recovered/Resolved]
  - Dyspnoea [Recovering/Resolving]
  - Chronic obstructive pulmonary disease [Recovered/Resolved]
  - Cystitis haemorrhagic [Unknown]
  - Sepsis [Recovered/Resolved]
  - Metabolic encephalopathy [Recovered/Resolved]
